FAERS Safety Report 5396734-5 (Version None)
Quarter: 2007Q3

REPORT INFORMATION
  Report Type: 
  Country: None (occurrence: None)
  Receive Date: 20070725
  Receipt Date: 20070718
  Transmission Date: 20080115
  Serious: Yes (Hospitalization)
  Sender: FDA-Public Use
  Company Number: A0664859A

PATIENT
  Sex: Female

DRUGS (1)
  1. BEXXAR [Suspect]
     Indication: NON-HODGKIN'S LYMPHOMA
     Dates: start: 20070515, end: 20070515

REACTIONS (4)
  - MYALGIA [None]
  - OEDEMA [None]
  - PYREXIA [None]
  - RESPIRATORY DISORDER [None]
